FAERS Safety Report 14923093 (Version 5)
Quarter: 2019Q4

REPORT INFORMATION
  Report Type: Report from Study
  Country: CA (occurrence: CA)
  Receive Date: 20180522
  Receipt Date: 20191016
  Transmission Date: 20200122
  Serious: Yes (Hospitalization, Other)
  Sender: FDA-Public Use
  Company Number: PHHY2014CA077921

PATIENT
  Age: 87 Year
  Sex: Female

DRUGS (14)
  1. CALCIUM CARBONATE. [Concomitant]
     Active Substance: CALCIUM CARBONATE
     Indication: PRODUCT USED FOR UNKNOWN INDICATION
     Dosage: 500 MG, UNK
     Route: 065
  2. OMEGA 3 [Concomitant]
     Active Substance: OMEGA-3 FATTY ACIDS
     Indication: PRODUCT USED FOR UNKNOWN INDICATION
     Route: 065
  3. SANDOSTATIN LAR DEPOT [Suspect]
     Active Substance: OCTREOTIDE ACETATE
     Dosage: 10 MG, EVERY 6 WEEKS
     Route: 030
  4. ETIDRONATE [Concomitant]
     Active Substance: ETIDRONATE DISODIUM
     Indication: PRODUCT USED FOR UNKNOWN INDICATION
     Dosage: 400 MG, UNK
     Route: 065
  5. CELEXA [Concomitant]
     Active Substance: CITALOPRAM HYDROBROMIDE
     Indication: PRODUCT USED FOR UNKNOWN INDICATION
     Dosage: 20 MG, QD
     Route: 065
  6. GLUCOSAMIN [Concomitant]
     Active Substance: GLUCOSAMINE
     Indication: PRODUCT USED FOR UNKNOWN INDICATION
     Route: 065
  7. SANDOSTATIN LAR DEPOT [Suspect]
     Active Substance: OCTREOTIDE ACETATE
     Dosage: 10 MG, EVERY 6 WEEKS
     Route: 030
     Dates: start: 20080430
  8. SULFADIAZINE. [Suspect]
     Active Substance: SULFADIAZINE
     Indication: URINARY TRACT INFECTION
     Route: 065
  9. VITAMIN D [Concomitant]
     Active Substance: VITAMIN D NOS
     Indication: PRODUCT USED FOR UNKNOWN INDICATION
     Route: 065
  10. ASPIRIN. [Concomitant]
     Active Substance: ASPIRIN
     Indication: PRODUCT USED FOR UNKNOWN INDICATION
     Route: 065
  11. SANDOSTATIN LAR DEPOT [Suspect]
     Active Substance: OCTREOTIDE ACETATE
     Indication: ACROMEGALY
     Dosage: 10 MG, QMO
     Route: 030
     Dates: start: 20051011
  12. NITROFURANTOINE [Suspect]
     Active Substance: NITROFURANTOIN
     Indication: URINARY TRACT INFECTION
     Route: 065
  13. CEFADROXIL. [Suspect]
     Active Substance: CEFADROXIL
     Indication: PRODUCT USED FOR UNKNOWN INDICATION
     Route: 065
  14. SYNTHROID [Concomitant]
     Active Substance: LEVOTHYROXINE SODIUM
     Indication: PRODUCT USED FOR UNKNOWN INDICATION
     Dosage: 0.1 MG, QD
     Route: 058

REACTIONS (24)
  - Spinal fracture [Unknown]
  - Spinal cord injury lumbar [Unknown]
  - Drug hypersensitivity [Unknown]
  - Headache [Unknown]
  - Hot flush [Unknown]
  - Pneumonia [Recovering/Resolving]
  - Rib fracture [Unknown]
  - Malaise [Unknown]
  - Diarrhoea [Unknown]
  - Inappropriate schedule of product administration [Unknown]
  - Fall [Unknown]
  - Nausea [Unknown]
  - Hip fracture [Unknown]
  - Gait disturbance [Unknown]
  - Blood thyroid stimulating hormone increased [Unknown]
  - Gastritis [Unknown]
  - Groin pain [Unknown]
  - Blood pressure systolic increased [Unknown]
  - Nervousness [Unknown]
  - Urinary tract infection [Unknown]
  - Fatigue [Unknown]
  - Pain [Unknown]
  - Drug intolerance [Unknown]
  - Vomiting [Unknown]

NARRATIVE: CASE EVENT DATE: 20140524
